FAERS Safety Report 8555261-4 (Version None)
Quarter: 2012Q3

REPORT INFORMATION
  Report Type: 
  Country: None (occurrence: None)
  Receive Date: 20120731
  Receipt Date: 20110913
  Transmission Date: 20120928
  Serious: Yes (Other)
  Sender: FDA-Public Use
  Company Number: US-ASTRAZENECA-2011SE51488

PATIENT
  Age: 54 Year
  Sex: Male
  Weight: 97.5 kg

DRUGS (17)
  1. SEROQUEL [Suspect]
     Indication: BIPOLAR DISORDER
     Route: 048
     Dates: start: 20080101
  2. SEROQUEL [Suspect]
     Route: 048
     Dates: start: 20110824
  3. PRILETTAL [Concomitant]
  4. LISINOPRIL [Concomitant]
  5. SEROQUEL [Suspect]
     Route: 048
     Dates: start: 20110815
  6. LIPITOR [Concomitant]
  7. SEROQUEL [Suspect]
     Indication: DEPRESSION
     Route: 048
     Dates: start: 20080101
  8. ZANTAC [Concomitant]
  9. KAFLEX [Concomitant]
  10. SEROQUEL [Suspect]
     Route: 048
     Dates: start: 20110824
  11. SEROQUEL [Suspect]
     Route: 048
  12. METOPROLOL TARTRATE [Concomitant]
  13. SEROQUEL [Suspect]
     Route: 048
     Dates: start: 20110815
  14. SEROQUEL [Suspect]
     Route: 048
  15. TRICOR [Concomitant]
  16. PLAVIX [Concomitant]
  17. THYROID TAB [Concomitant]

REACTIONS (6)
  - INSOMNIA [None]
  - DRUG DOSE OMISSION [None]
  - DRUG EFFECT INCREASED [None]
  - SUICIDAL IDEATION [None]
  - SOMNOLENCE [None]
  - WRONG TECHNIQUE IN DRUG USAGE PROCESS [None]
